FAERS Safety Report 17712570 (Version 3)
Quarter: 2020Q3

REPORT INFORMATION
  Report Type: Spontaneous
  Country: US (occurrence: US)
  Receive Date: 20200427
  Receipt Date: 20200703
  Transmission Date: 20201102
  Serious: Yes (Hospitalization, Disabling, Other)
  Sender: FDA-Public Use
  Company Number: US-PFIZER INC-2020164094

PATIENT
  Age: 44 Year
  Sex: Male
  Weight: 103 kg

DRUGS (1)
  1. LYRICA [Suspect]
     Active Substance: PREGABALIN
     Indication: NERVE INJURY
     Dosage: 300 MG, 3X/DAY
     Route: 048

REACTIONS (8)
  - Limb crushing injury [Unknown]
  - Seizure [Recovering/Resolving]
  - Concussion [Unknown]
  - Accident [Recovered/Resolved with Sequelae]
  - Loss of personal independence in daily activities [Unknown]
  - Pelvic bone injury [Unknown]
  - Impaired driving ability [Unknown]
  - Prescribed overdose [Unknown]

NARRATIVE: CASE EVENT DATE: 2014
